FAERS Safety Report 9168242 (Version 1)
Quarter: 2013Q1

REPORT INFORMATION
  Report Type: Spontaneous
  Country: US (occurrence: US)
  Receive Date: 20130318
  Receipt Date: 20130318
  Transmission Date: 20140127
  Serious: Yes (Hospitalization, Disabling, Other)
  Sender: FDA-Public Use
  Company Number: PHEH2013US003656

PATIENT
  Age: 54 Year
  Sex: Male
  Weight: 103 kg

DRUGS (11)
  1. GLEEVEC [Suspect]
     Indication: CHRONIC MYELOID LEUKAEMIA
     Dosage: UNK UKN, UKN
     Route: 048
     Dates: start: 20121002
  2. XANAX [Concomitant]
     Indication: ANXIETY
     Dosage: 1 MG, BID,PRN
     Route: 048
  3. ASPIRIN [Concomitant]
     Dosage: 325 MG, DAILY
     Route: 048
  4. PROZAC [Concomitant]
     Dosage: 40 MG,DAILY
     Route: 048
  5. LORTAB [Concomitant]
     Indication: PAIN
     Dosage: 25/500 MG, PRN
     Route: 048
  6. OMEPRAZOLE [Concomitant]
     Dosage: 20 MG, DAILY
     Route: 048
  7. COLACE [Concomitant]
     Indication: CONSTIPATION
     Dosage: 100 MG, BID
     Route: 048
  8. DULCOLAX [Concomitant]
     Indication: CONSTIPATION
     Dosage: 10 MG, DAILY,PRN
  9. COMPAZINE [Concomitant]
     Dosage: 10 MG, TID,PRN
     Route: 048
  10. NIACIN [Concomitant]
     Dosage: 500 MG, BID
     Route: 048
  11. FISH OIL [Concomitant]
     Dosage: 2000 MG, BID
     Route: 048

REACTIONS (12)
  - Cardiac failure congestive [Recovered/Resolved with Sequelae]
  - Bronchitis [Recovered/Resolved]
  - Sepsis [Recovered/Resolved]
  - Sinus congestion [Unknown]
  - Retching [Unknown]
  - Pyrexia [Unknown]
  - Productive cough [Unknown]
  - Nausea [Unknown]
  - Vomiting [Unknown]
  - Diarrhoea [Unknown]
  - Hypokalaemia [Unknown]
  - Hyperglycaemia [Unknown]
